FAERS Safety Report 15481153 (Version 2)
Quarter: 2018Q4

REPORT INFORMATION
  Report Type: Spontaneous
  Country: JP (occurrence: JP)
  Receive Date: 20181010
  Receipt Date: 20181010
  Transmission Date: 20190205
  Serious: Yes (Life-Threatening, Other)
  Sender: FDA-Public Use
  Company Number: JP-TEVA-2018-JP-001890J

PATIENT
  Age: 71 Year
  Sex: Female

DRUGS (7)
  1. BLOPRESS [Concomitant]
     Active Substance: CANDESARTAN CILEXETIL
     Dosage: 2 MILLIGRAM DAILY;
     Route: 048
     Dates: start: 20050916, end: 20140318
  2. LIVALO [Concomitant]
     Active Substance: PITAVASTATIN CALCIUM
     Dosage: 2 MILLIGRAM DAILY;
     Route: 048
     Dates: start: 20050916, end: 20140318
  3. ACTOS [Suspect]
     Active Substance: PIOGLITAZONE HYDROCHLORIDE
     Dosage: 15 MILLIGRAM DAILY;
     Route: 048
     Dates: start: 201404
  4. ACTOS [Suspect]
     Active Substance: PIOGLITAZONE HYDROCHLORIDE
     Indication: DIABETES MELLITUS
     Dosage: 30 MILLIGRAM DAILY;
     Route: 048
     Dates: start: 20050916, end: 20140318
  5. FUZULEBAN [Concomitant]
     Active Substance: AMBROXOL HYDROCHLORIDE
     Indication: PRODUCTIVE COUGH
     Dosage: 45 MILLIGRAM DAILY;
     Route: 065
     Dates: start: 20090708, end: 20090722
  6. AVELOX [Concomitant]
     Active Substance: MOXIFLOXACIN HYDROCHLORIDE
     Indication: PRODUCTIVE COUGH
     Dosage: 400 MILLIGRAM DAILY;
     Route: 065
     Dates: start: 20090708, end: 20090722
  7. PAMILCON [Concomitant]
     Active Substance: GLYBURIDE
     Dosage: 5 MILLIGRAM DAILY;
     Route: 048
     Dates: start: 20050916, end: 20140318

REACTIONS (3)
  - Oedema [Unknown]
  - Bladder cancer [Recovered/Resolved]
  - Haematuria [Unknown]

NARRATIVE: CASE EVENT DATE: 20090722
